FAERS Safety Report 8024147-6 (Version None)
Quarter: 2012Q1

REPORT INFORMATION
  Report Type: 
  Country: None (occurrence: None)
  Receive Date: 20120105
  Receipt Date: 20111222
  Transmission Date: 20120608
  Serious: Yes (Hospitalization, Other)
  Sender: FDA-Public Use
  Company Number: IT-UCBSA-047520

PATIENT
  Sex: Male

DRUGS (4)
  1. ENALAPRIL MALEATE [Suspect]
     Indication: HYPERTENSION
     Dosage: 5 MG
     Route: 048
     Dates: start: 20090101, end: 20111028
  2. KEPPRA [Suspect]
     Indication: EPILEPSY
     Dosage: 500 MG
     Route: 048
     Dates: start: 20090101, end: 20111028
  3. ALLOPURINOL [Suspect]
     Indication: HYPERURICAEMIA
     Dosage: 100 MG DAILY
     Route: 048
     Dates: start: 20090101, end: 20111028
  4. ATORVASTATIN CALCIUM [Suspect]
     Indication: HYPERCHOLESTEROLAEMIA
     Dosage: 10 MG
     Route: 048
     Dates: start: 20090101, end: 20111028

REACTIONS (6)
  - BALANCE DISORDER [None]
  - THROMBOCYTOPENIA [None]
  - SEPTIC SHOCK [None]
  - INTERSTITIAL LUNG DISEASE [None]
  - LEUKOPENIA [None]
  - RED BLOOD CELL COUNT DECREASED [None]
